FAERS Safety Report 9734951 (Version 7)
Quarter: 2014Q1

REPORT INFORMATION
  Report Type: Spontaneous
  Country: US (occurrence: US)
  Receive Date: 20131206
  Receipt Date: 20140117
  Transmission Date: 20141002
  Serious: No
  Sender: FDA-Public Use
  Company Number: US-PFIZER INC-2013346430

PATIENT
  Sex: Male

DRUGS (5)
  1. VIAGRA [Suspect]
     Dosage: 100 MG, UNK
  2. VIAGRA [Suspect]
     Dosage: 200 MG, (2 TABLETS OF 100MG)
  3. LOPRESSOR [Concomitant]
     Dosage: 50 MG, UNK
  4. SYNTHROID [Concomitant]
     Dosage: 100 UG, UNK
  5. PAXIL [Concomitant]
     Dosage: 20 MG, UNK

REACTIONS (5)
  - Extra dose administered [Unknown]
  - Neuropathy peripheral [Unknown]
  - Spermatozoa abnormal [Unknown]
  - Hearing impaired [Unknown]
  - Drug ineffective [Unknown]
